FAERS Safety Report 13268175 (Version 1)
Quarter: 2017Q1

REPORT INFORMATION
  Report Type: Spontaneous
  Country: US (occurrence: US)
  Receive Date: 20170224
  Receipt Date: 20170224
  Transmission Date: 20170428
  Serious: No
  Sender: FDA-Public Use
  Company Number: US-ASTRAZENECA-2017SE17612

PATIENT
  Age: 37 Year
  Sex: Female
  Weight: 90.7 kg

DRUGS (15)
  1. PRILOSEC [Suspect]
     Active Substance: OMEPRAZOLE MAGNESIUM
     Indication: GASTROOESOPHAGEAL REFLUX DISEASE
     Route: 048
  2. BREO ELLIPTA [Concomitant]
     Active Substance: FLUTICASONE FUROATE\VILANTEROL TRIFENATATE
     Indication: ASTHMA
     Dosage: ONE INHALATION DAILY
     Route: 055
  3. ZYRTEC [Concomitant]
     Active Substance: CETIRIZINE HYDROCHLORIDE
     Dosage: TWICE A DAY
     Route: 048
  4. PROAIR HFA [Concomitant]
     Active Substance: ALBUTEROL SULFATE
     Indication: SARCOIDOSIS
     Dosage: TAKEN AS NEEDED
     Route: 055
     Dates: start: 1997
  5. METFORMIN [Concomitant]
     Active Substance: METFORMIN HYDROCHLORIDE
     Indication: TYPE 2 DIABETES MELLITUS
     Route: 048
     Dates: start: 2003
  6. BREO ELLIPTA [Concomitant]
     Active Substance: FLUTICASONE FUROATE\VILANTEROL TRIFENATATE
     Indication: SARCOIDOSIS
     Dosage: ONE INHALATION DAILY
     Route: 055
  7. BYDUREON [Suspect]
     Active Substance: EXENATIDE
     Indication: TYPE 2 DIABETES MELLITUS
     Route: 058
  8. METOPROLOL SUCCINATE. [Suspect]
     Active Substance: METOPROLOL SUCCINATE
     Indication: TACHYCARDIA
     Route: 048
     Dates: start: 1993
  9. LYRICA [Concomitant]
     Active Substance: PREGABALIN
     Indication: NEURALGIA
     Route: 048
     Dates: start: 2000
  10. CYMBALTA [Concomitant]
     Active Substance: DULOXETINE HYDROCHLORIDE
     Indication: NEURALGIA
     Route: 048
     Dates: start: 2000
  11. GLIPIZIDE. [Concomitant]
     Active Substance: GLIPIZIDE
     Indication: TYPE 2 DIABETES MELLITUS
     Route: 048
     Dates: start: 2015
  12. HYZAAR [Concomitant]
     Active Substance: HYDROCHLOROTHIAZIDE\LOSARTAN POTASSIUM
     Indication: BLOOD PRESSURE ABNORMAL
     Dosage: 50/12.5 MG
     Route: 048
     Dates: start: 1993
  13. ZYRTEC [Concomitant]
     Active Substance: CETIRIZINE HYDROCHLORIDE
     Dosage: DAILY
     Route: 048
  14. PLAQUENIL [Concomitant]
     Active Substance: HYDROXYCHLOROQUINE SULFATE
     Indication: SARCOIDOSIS
     Route: 048
     Dates: start: 2002
  15. PROAIR HFA [Concomitant]
     Active Substance: ALBUTEROL SULFATE
     Indication: ASTHMA
     Dosage: TAKEN AS NEEDED
     Route: 055
     Dates: start: 1997

REACTIONS (8)
  - Sarcoidosis [Not Recovered/Not Resolved]
  - Product use issue [Unknown]
  - Injection site nodule [Not Recovered/Not Resolved]
  - Off label use [Unknown]
  - Injection site pruritus [Not Recovered/Not Resolved]
  - Spinal pain [Unknown]
  - Muscle spasms [Unknown]
  - Drug dose omission [Unknown]

NARRATIVE: CASE EVENT DATE: 1997
